FAERS Safety Report 7619536-5 (Version None)
Quarter: 2011Q3

REPORT INFORMATION
  Report Type: 
  Country: None (occurrence: None)
  Receive Date: 20110719
  Receipt Date: 20110707
  Transmission Date: 20111222
  Serious: Yes (Hospitalization)
  Sender: FDA-Public Use
  Company Number: SE-JNJFOC-20110702718

PATIENT
  Age: 65 Year
  Sex: Female

DRUGS (4)
  1. REMICADE [Suspect]
     Route: 042
     Dates: start: 20020219, end: 20020305
  2. METHOTREXATE [Concomitant]
  3. PREDNISOLONE [Concomitant]
  4. REMICADE [Suspect]
     Indication: RHEUMATOID ARTHRITIS
     Route: 042
     Dates: start: 20020123

REACTIONS (3)
  - INFUSION RELATED REACTION [None]
  - RESPIRATORY DISORDER [None]
  - PNEUMONIA [None]
